FAERS Safety Report 6282764-8 (Version None)
Quarter: 2009Q3

REPORT INFORMATION
  Report Type: 
  Country: None (occurrence: None)
  Receive Date: 20090724
  Receipt Date: 20090715
  Transmission Date: 20100115
  Serious: Yes (Disabling)
  Sender: FDA-Public Use
  Company Number: DK-AVENTIS-200917090GDDC

PATIENT
  Age: 76 Year
  Sex: Female

DRUGS (2)
  1. METRONIDAZOLE [Suspect]
     Indication: LIVER ABSCESS
     Dosage: DOSE: UNK
     Dates: start: 20070112, end: 20070309
  2. CIPROXIN                           /00697201/ [Suspect]
     Indication: LIVER ABSCESS
     Dosage: DOSE: UNK
     Dates: start: 20070112

REACTIONS (1)
  - POLYNEUROPATHY [None]
